FAERS Safety Report 8924660 (Version 1)
Quarter: 2012Q4

REPORT INFORMATION
  Report Type: 
  Country: US (occurrence: US)
  Receive Date: 20121126
  Receipt Date: 20121126
  Transmission Date: 20130627
  Serious: No
  Sender: FDA-Public Use
  Company Number: US-PFIZER INC-2012292958

PATIENT
  Age: 45 Year
  Sex: Female
  Weight: 65.76 kg

DRUGS (4)
  1. PRISTIQ [Suspect]
     Indication: DEPRESSION
     Dosage: 50 mg, 1x/day
     Dates: start: 201208
  2. ABILIFY [Suspect]
     Indication: DEPRESSION
     Dosage: 2 mg, 1x/day
     Dates: start: 201209, end: 2012
  3. ABILIFY [Suspect]
     Dosage: 5 mg, 1x/day
     Dates: start: 2012
  4. VYVANSE [Concomitant]
     Indication: ATTENTION DEFICIT DISORDER
     Dosage: 70 mg in morning and 40 mg in evening

REACTIONS (7)
  - Arthritis [Not Recovered/Not Resolved]
  - Arthralgia [Unknown]
  - Joint swelling [Unknown]
  - Pain in extremity [Unknown]
  - Pain [Unknown]
  - Weight increased [Unknown]
  - Drug ineffective [Unknown]
